FAERS Safety Report 5205064-3 (Version None)
Quarter: 2007Q1

REPORT INFORMATION
  Report Type: 
  Country: None (occurrence: None)
  Receive Date: 20070110
  Receipt Date: 20061017
  Transmission Date: 20070707
  Serious: No
  Sender: FDA-Public Use
  Company Number: US-BRISTOL-MYERS SQUIBB COMPANY-13544556

PATIENT
  Age: 45 Year
  Sex: Female
  Weight: 63 kg

DRUGS (3)
  1. ABILIFY [Suspect]
     Indication: BIPOLAR DISORDER
  2. CLONIDINE [Concomitant]
  3. TOPAMAX [Concomitant]

REACTIONS (1)
  - SKIN DISCOLOURATION [None]
